FAERS Safety Report 13167399 (Version 1)
Quarter: 2017Q1

REPORT INFORMATION
  Report Type: Spontaneous
  Country: US (occurrence: US)
  Receive Date: 20170130
  Receipt Date: 20170130
  Transmission Date: 20170428
  Serious: Yes (Hospitalization, Other)
  Sender: FDA-Public Use
  Company Number: None

PATIENT
  Age: 31 Year
  Sex: Female

DRUGS (6)
  1. MIRTAZAPINE. [Concomitant]
     Active Substance: MIRTAZAPINE
  2. QUETIAPINE ER 400 MG [Suspect]
     Active Substance: QUETIAPINE
     Indication: BIPOLAR DISORDER
     Dosage: 40MG QDS PO
     Route: 048
  3. GABAPENTIN. [Concomitant]
     Active Substance: GABAPENTIN
  4. CLONIDINE. [Concomitant]
     Active Substance: CLONIDINE
  5. PROPRANOLOL [Concomitant]
     Active Substance: PROPRANOLOL HYDROCHLORIDE
  6. PERPHENAZINE. [Concomitant]
     Active Substance: PERPHENAZINE

REACTIONS (3)
  - Product substitution issue [None]
  - Nephritis [None]
  - Urinary retention [None]

NARRATIVE: CASE EVENT DATE: 20170118
